FAERS Safety Report 9393569 (Version 5)
Quarter: 2013Q3

REPORT INFORMATION
  Report Type: Report from Study
  Country: AU (occurrence: AU)
  Receive Date: 20130710
  Receipt Date: 20130827
  Transmission Date: 20140515
  Serious: Yes (Other)
  Sender: FDA-Public Use
  Company Number: AU-PFIZER INC-2013194641

PATIENT
  Age: 49 Year
  Sex: Male
  Weight: 78 kg

DRUGS (11)
  1. TOFACITINIB CITRATE [Suspect]
     Indication: IMMUNOSUPPRESSION
     Dosage: 5 MG, 2X/DAY
     Route: 048
     Dates: start: 20100423
  2. PREDNISONE [Suspect]
     Indication: IMMUNOSUPPRESSION
     Dosage: 5 MG, 1X/DAY
     Route: 048
     Dates: start: 20090221
  3. CELLCEPT [Suspect]
     Indication: IMMUNOSUPPRESSION
     Dosage: 500 MG, 3X/DAY
     Route: 048
     Dates: start: 20091024
  4. CELLCEPT [Suspect]
     Dosage: 500 MG, 2X/DAY
     Route: 048
     Dates: start: 20101102
  5. PANTOPRAZOLE [Concomitant]
     Indication: GASTRITIS PROPHYLAXIS
     Dosage: 40 MG, 1X/DAY
     Route: 048
     Dates: start: 20081016
  6. OSTEOCAL D [Concomitant]
     Indication: PROPHYLAXIS
     Dosage: 1000 MG, 1X/DAY
     Route: 048
     Dates: start: 20081213
  7. CALCITRIOL [Concomitant]
     Indication: PROPHYLAXIS
     Dosage: 0.5 UG, 1X/DAY
     Route: 048
     Dates: start: 20081213
  8. BACTRIM [Concomitant]
     Indication: PROPHYLAXIS
     Dosage: 400 MG, 1X/DAY
     Route: 048
     Dates: start: 20101102
  9. ZANIDIP [Concomitant]
     Indication: HYPERTENSION
     Dosage: 10 MG, 1X/DAY
     Route: 048
     Dates: start: 20081209
  10. ATENOLOL [Concomitant]
     Indication: HYPERTENSION
     Dosage: 50 MG, 1X/DAY
     Route: 048
     Dates: start: 20081025
  11. LIPITOR [Concomitant]
     Indication: HYPERCHOLESTEROLAEMIA
     Dosage: 10 MG, 1X/DAY
     Route: 048
     Dates: start: 20091024

REACTIONS (1)
  - Squamous cell carcinoma of skin [Recovered/Resolved]
